FAERS Safety Report 17691376 (Version 3)
Quarter: 2020Q2

REPORT INFORMATION
  Report Type: Spontaneous
  Country: US (occurrence: US)
  Receive Date: 20200422
  Receipt Date: 20200519
  Transmission Date: 20200714
  Serious: No
  Sender: FDA-Public Use
  Company Number: US-GLAXOSMITHKLINE-US2020AMR067601

PATIENT
  Age: 67 Year
  Sex: Female

DRUGS (1)
  1. ALBUTEROL SULFATE INHALATION POWDER [Suspect]
     Active Substance: ALBUTEROL SULFATE
     Indication: INCREASED UPPER AIRWAY SECRETION
     Dosage: UNK
     Route: 065

REACTIONS (4)
  - Product complaint [Unknown]
  - Product dose omission [Unknown]
  - Product use in unapproved indication [Unknown]
  - Off label use [Unknown]
